FAERS Safety Report 10346241 (Version 2)
Quarter: 2014Q3

REPORT INFORMATION
  Report Type: Spontaneous
  Country: IN (occurrence: IN)
  Receive Date: 20140728
  Receipt Date: 20140813
  Transmission Date: 20150326
  Serious: Yes (Other)
  Sender: FDA-Public Use
  Company Number: IN-BAUSCH-BL-2014-003454

PATIENT
  Age: 35 Year
  Sex: Male

DRUGS (1)
  1. DEXAMETHASONE. [Suspect]
     Active Substance: DEXAMETHASONE
     Indication: RHINITIS
     Route: 045

REACTIONS (2)
  - Chorioretinopathy [Recovering/Resolving]
  - Incorrect route of drug administration [Unknown]
